FAERS Safety Report 14692720 (Version 1)
Quarter: 2018Q1

REPORT INFORMATION
  Report Type: Spontaneous
  Country: CA (occurrence: CA)
  Receive Date: 20180329
  Receipt Date: 20180329
  Transmission Date: 20180509
  Serious: Yes (Life-Threatening, Hospitalization, Other)
  Sender: FDA-Public Use
  Company Number: CA-VISTAPHARM, INC.-VER201803-000510

PATIENT
  Age: 58 Year
  Sex: Female

DRUGS (12)
  1. METHADONE [Suspect]
     Active Substance: METHADONE HYDROCHLORIDE
     Indication: PRODUCT USED FOR UNKNOWN INDICATION
  2. METHADONE [Suspect]
     Active Substance: METHADONE HYDROCHLORIDE
  3. MORPHINE [Concomitant]
     Active Substance: MORPHINE
     Dosage: LIQUID
     Route: 048
  4. NALOXONE [Concomitant]
     Active Substance: NALOXONE
     Indication: DEPRESSED LEVEL OF CONSCIOUSNESS
     Route: 030
  5. HYDROMORPHONE [Concomitant]
     Active Substance: HYDROMORPHONE
     Indication: WITHDRAWAL SYNDROME
  6. METHADONE [Suspect]
     Active Substance: METHADONE HYDROCHLORIDE
  7. LORAZEPAM. [Concomitant]
     Active Substance: LORAZEPAM
     Indication: SEDATION
  8. MORPHINE [Concomitant]
     Active Substance: MORPHINE
     Indication: SEDATION
  9. HYDROMORPHONE [Concomitant]
     Active Substance: HYDROMORPHONE
     Indication: AGITATION
  10. METHADONE [Suspect]
     Active Substance: METHADONE HYDROCHLORIDE
  11. MORPHINE [Concomitant]
     Active Substance: MORPHINE
     Dosage: LIQUID
     Route: 048
  12. MORPHINE [Concomitant]
     Active Substance: MORPHINE
     Dosage: LIQUID
     Route: 048

REACTIONS (8)
  - Bundle branch block left [Unknown]
  - Cardiac failure congestive [Unknown]
  - Pneumonia aspiration [Unknown]
  - Withdrawal syndrome [Unknown]
  - Electrocardiogram QT prolonged [Unknown]
  - Cardiac ventricular thrombosis [Unknown]
  - Congestive cardiomyopathy [Unknown]
  - Drug dose omission [Unknown]
